FAERS Safety Report 17104533 (Version 1)
Quarter: 2019Q4

REPORT INFORMATION
  Report Type: Spontaneous
  Country: US (occurrence: US)
  Receive Date: 20191203
  Receipt Date: 20191203
  Transmission Date: 20200122
  Serious: No
  Sender: FDA-Public Use
  Company Number: US-UCBSA-2018004427

PATIENT
  Age: 6 Month
  Sex: Male

DRUGS (2)
  1. KEPPRA [Suspect]
     Active Substance: LEVETIRACETAM
     Indication: SEIZURE
     Dosage: UNKNOWN DOSE
  2. LINEZOLID. [Concomitant]
     Active Substance: LINEZOLID
     Indication: STAPHYLOCOCCAL INFECTION
     Dosage: UNKNOWN DOSE
     Route: 048

REACTIONS (1)
  - No adverse event [Unknown]
